FAERS Safety Report 21301870 (Version 1)
Quarter: 2022Q3

REPORT INFORMATION
  Report Type: Report from Study
  Country: US (occurrence: US)
  Receive Date: 20220907
  Receipt Date: 20220907
  Transmission Date: 20221027
  Serious: Yes (Hospitalization)
  Sender: FDA-Public Use
  Company Number: US-BIOGEN-2022BI01152412

PATIENT
  Sex: Female

DRUGS (1)
  1. TYSABRI [Suspect]
     Active Substance: NATALIZUMAB
     Indication: Multiple sclerosis
     Route: 050
     Dates: start: 20080103

REACTIONS (6)
  - Hypoaesthesia [Recovered/Resolved]
  - Paraesthesia [Not Recovered/Not Resolved]
  - Gait inability [Recovered/Resolved]
  - General physical health deterioration [Not Recovered/Not Resolved]
  - Multiple sclerosis [Not Recovered/Not Resolved]
  - Weight increased [Not Recovered/Not Resolved]
